FAERS Safety Report 4339191-X (Version None)
Quarter: 2004Q2

REPORT INFORMATION
  Report Type: 
  Country: None (occurrence: None)
  Receive Date: 20040412
  Receipt Date: 20040401
  Transmission Date: 20050107
  Serious: Yes (Other)
  Sender: FDA-Public Use
  Company Number: 200411596BCC

PATIENT
  Sex: Male
  Weight: 97.5234 kg

DRUGS (8)
  1. ALKA-SELTZER PLUS COUGH + COLD EFFERVESCENT [Suspect]
     Indication: EUPHORIC MOOD
     Dosage: 200 MG, TOTAL DAILY, ORAL
     Route: 048
     Dates: start: 20040312
  2. COLD + COUGH SYRUP WITH DEXTROMETHORPHAN (COUGH AND COLD PREPARATIONS) [Suspect]
     Indication: DRUG ABUSER
     Dosage: 240 ML, TOAL DAILY, ORAL
     Route: 048
     Dates: start: 20040312
  3. BENADRYL [Suspect]
     Dosage: 50 MG, TOTAL DAILY, ORAL
     Route: 048
     Dates: start: 20040312
  4. SEROQUEL [Concomitant]
  5. CELEXA [Concomitant]
  6. TRILEPTAL [Concomitant]
  7. KLONOPIN [Concomitant]
  8. TRAZODONE HCL [Concomitant]

REACTIONS (8)
  - DECREASED APPETITE [None]
  - DIARRHOEA [None]
  - DRUG ABUSER [None]
  - FEELING ABNORMAL [None]
  - FLATULENCE [None]
  - HALLUCINATION, AUDITORY [None]
  - HOT FLUSH [None]
  - PARANOIA [None]
